FAERS Safety Report 13770561 (Version 1)
Quarter: 2017Q3

REPORT INFORMATION
  Report Type: Spontaneous
  Country: TR (occurrence: TR)
  Receive Date: 20170719
  Receipt Date: 20170719
  Transmission Date: 20171127
  Serious: Yes (Death)
  Sender: FDA-Public Use
  Company Number: TR-BAYER-2017-130984

PATIENT
  Age: 50 Year
  Sex: Male

DRUGS (1)
  1. STIVARGA [Suspect]
     Active Substance: REGORAFENIB
     Indication: HEPATIC CANCER
     Dosage: UNK
     Dates: start: 20170524

REACTIONS (3)
  - Product use in unapproved indication [None]
  - Off label use [None]
  - Death [Fatal]

NARRATIVE: CASE EVENT DATE: 2017
